FAERS Safety Report 18659212 (Version 5)
Quarter: 2021Q1

REPORT INFORMATION
  Report Type: Spontaneous
  Country: DE (occurrence: DE)
  Receive Date: 20201224
  Receipt Date: 20210208
  Transmission Date: 20210419
  Serious: Yes (Hospitalization)
  Sender: FDA-Public Use
  Company Number: DE-CELGENEUS-DEU-20201206197

PATIENT
  Age: 70 Year
  Sex: Male
  Weight: 83 kg

DRUGS (22)
  1. VENETOCLAX. [Concomitant]
     Active Substance: VENETOCLAX
     Dosage: 400 MILLIGRAM
     Route: 048
     Dates: start: 20201120, end: 20201203
  2. ALPHA LIPOIC ACID [Concomitant]
     Active Substance: .ALPHA.-LIPOIC ACID
     Indication: DIABETIC NEUROPATHY
     Dosage: 600 MILLIGRAM
     Route: 048
     Dates: start: 2017
  3. METOPROLOL. [Concomitant]
     Active Substance: METOPROLOL
     Indication: HYPERTENSION
     Dosage: MORNING 1 TABLET, EVENING HALF TABLET
     Route: 048
     Dates: start: 2000
  4. LOPERAMID [Concomitant]
     Active Substance: LOPERAMIDE
     Indication: DIARRHOEA
     Route: 048
     Dates: start: 20201126, end: 202101
  5. METFORMIN [Concomitant]
     Active Substance: METFORMIN HYDROCHLORIDE
     Indication: DIABETES MELLITUS
     Dosage: 1160 MILLIGRAM
     Route: 048
     Dates: start: 2017, end: 202101
  6. SODIUM CHLORIDE. [Concomitant]
     Active Substance: SODIUM CHLORIDE
     Indication: SYNCOPE
     Route: 065
  7. OMEPRAZOLE. [Concomitant]
     Active Substance: OMEPRAZOLE
     Indication: PROPHYLAXIS
     Dosage: 20 MILLIGRAM
     Route: 048
     Dates: start: 2011, end: 202101
  8. AZACITIDINE. [Suspect]
     Active Substance: AZACITIDINE
     Indication: MYELODYSPLASTIC SYNDROME
     Dosage: 75 MILLIGRAM/SQ. METER
     Route: 041
     Dates: start: 20201120, end: 20201126
  9. METOCARBAMOL [Concomitant]
     Active Substance: METHOCARBAMOL
     Indication: MUSCLE TIGHTNESS
     Dosage: 700 MILLIGRAM
     Route: 048
     Dates: start: 20201121, end: 202101
  10. RAMIPRIL. [Concomitant]
     Active Substance: RAMIPRIL
     Indication: HYPERTENSION
     Dosage: 10 MILLIGRAM
     Route: 048
     Dates: start: 2020, end: 202101
  11. TAMSULOSIN [Concomitant]
     Active Substance: TAMSULOSIN
     Indication: BENIGN PROSTATIC HYPERPLASIA
     Dosage: 0.4 MILLIGRAM
     Route: 048
     Dates: start: 2011
  12. ACETYLSALICYLIC ACID [Concomitant]
     Active Substance: ASPIRIN
     Indication: MYOCARDIAL INFARCTION
     Dosage: 100 MILLIGRAM
     Route: 048
     Dates: start: 2019
  13. ALPHA LIPOIC ACID [Concomitant]
     Active Substance: .ALPHA.-LIPOIC ACID
     Route: 065
  14. LOPERAMID [Concomitant]
     Active Substance: LOPERAMIDE
     Indication: PROPHYLAXIS
  15. VENETOCLAX. [Concomitant]
     Active Substance: VENETOCLAX
     Indication: MYELODYSPLASTIC SYNDROME
     Dosage: 400 MILLIGRAM
     Route: 048
  16. METOCLOPRAMID [Concomitant]
     Active Substance: METOCLOPRAMIDE
     Indication: NAUSEA
     Route: 048
     Dates: start: 20201126
  17. MAGNESIUM [Concomitant]
     Active Substance: MAGNESIUM
     Indication: MINERAL SUPPLEMENTATION
     Dosage: 100 MILLIGRAM
     Route: 048
     Dates: start: 2017
  18. IBUPROFEN. [Concomitant]
     Active Substance: IBUPROFEN
     Indication: INFLAMMATION
     Route: 048
     Dates: start: 20201122, end: 202101
  19. MAGNESIUM [Concomitant]
     Active Substance: MAGNESIUM
     Indication: PROPHYLAXIS
  20. METOCARBAMOL [Concomitant]
     Active Substance: METHOCARBAMOL
     Indication: PROPHYLAXIS
     Dosage: 600 MILLIGRAM
     Route: 048
     Dates: start: 2017, end: 20201120
  21. COTRIMOXAZOL [Concomitant]
     Active Substance: SULFAMETHOXAZOLE\TRIMETHOPRIM
     Indication: INFECTION PROPHYLAXIS
     Dosage: 960 MILLIGRAM
     Route: 048
     Dates: start: 20201123, end: 202101
  22. TORASEMID [Concomitant]
     Active Substance: TORSEMIDE
     Indication: CORONARY ARTERY DISEASE
     Dosage: 10 MILLIGRAM
     Route: 048
     Dates: start: 2011

REACTIONS (2)
  - Pneumonia viral [Not Recovered/Not Resolved]
  - Syncope [Recovered/Resolved]

NARRATIVE: CASE EVENT DATE: 20201203
